FAERS Safety Report 8313772-0 (Version None)
Quarter: 2012Q2

REPORT INFORMATION
  Report Type: 
  Country: None (occurrence: None)
  Receive Date: 20120426
  Receipt Date: 20110808
  Transmission Date: 20120825
  Serious: Yes (Other)
  Sender: FDA-Public Use
  Company Number: US-TEVA-US021259

PATIENT
  Sex: Male
  Weight: 89 kg

DRUGS (9)
  1. XANAX [Concomitant]
     Indication: SLEEP DISORDER
     Dosage: QHS PRN
     Route: 048
     Dates: start: 20020101
  2. PROZAC [Concomitant]
     Indication: NARCOLEPSY
     Dosage: 60 MILLIGRAM;
     Route: 048
     Dates: start: 20060101
  3. PROVIGIL [Suspect]
     Indication: NARCOLEPSY
     Dosage: 400 MILLIGRAM;
     Route: 048
     Dates: start: 19990101
  4. DEXEDRINE [Suspect]
     Indication: NARCOLEPSY
     Dosage: 30 MILLIGRAM;
     Route: 048
     Dates: start: 20040101
  5. AVALIDE [Concomitant]
     Indication: HYPERTENSION
     Dosage: 300/12.5MG QD
     Route: 048
     Dates: start: 20000101
  6. ABILIFY [Concomitant]
     Indication: PSYCHOTIC DISORDER
     Dosage: 30 MILLIGRAM;
     Route: 048
     Dates: start: 20060101
  7. WELLBUTRIN [Concomitant]
     Indication: NARCOLEPSY
     Dosage: 300 MILLIGRAM;
     Route: 048
     Dates: start: 19990101
  8. METHYLPHENIDATE [Suspect]
     Indication: NARCOLEPSY
     Dosage: 60 MILLIGRAM;
     Route: 048
     Dates: start: 20040101
  9. ATENOLOL [Concomitant]
     Indication: HYPERTENSION
     Dosage: 100 MILLIGRAM;
     Route: 048
     Dates: start: 20050101

REACTIONS (2)
  - PSYCHOTIC DISORDER [None]
  - DRUG INEFFECTIVE [None]
